FAERS Safety Report 13031843 (Version 1)
Quarter: 2016Q4

REPORT INFORMATION
  Report Type: Spontaneous
  Country: US (occurrence: US)
  Receive Date: 20161215
  Receipt Date: 20161215
  Transmission Date: 20170207
  Serious: No
  Sender: FDA-Public Use
  Company Number: US-PFIZER INC-2016571011

PATIENT
  Age: 67 Year
  Sex: Male
  Weight: 73.39 kg

DRUGS (3)
  1. LYRICA [Suspect]
     Active Substance: PREGABALIN
     Indication: BURNING SENSATION
  2. LYRICA [Suspect]
     Active Substance: PREGABALIN
     Indication: NEURALGIA
  3. LYRICA [Suspect]
     Active Substance: PREGABALIN
     Indication: RHEUMATOID ARTHRITIS
     Dosage: 75 MG, (TWO IN THE MORNING, ONE AROUND OR AFTER LUNCH TIME, ONE AT NIGHT)
     Route: 048

REACTIONS (6)
  - Weight increased [Unknown]
  - Weight decreased [Unknown]
  - Increased appetite [Unknown]
  - Malaise [Unknown]
  - Product use issue [Unknown]
  - Drug effect incomplete [Unknown]
